FAERS Safety Report 5812260-0 (Version None)
Quarter: 2008Q3

REPORT INFORMATION
  Report Type: 
  Country: None (occurrence: None)
  Receive Date: 20080716
  Receipt Date: 20080708
  Transmission Date: 20090109
  Serious: Yes (Death)
  Sender: FDA-Public Use
  Company Number: US-GENENTECH-258425

PATIENT
  Age: 49 Year
  Sex: Female

DRUGS (11)
  1. BEVACIZUMAB [Suspect]
     Indication: GLIOMA
     Dosage: UNK
     Route: 042
     Dates: start: 20080107, end: 20080312
  2. ENZASTAURIN [Suspect]
     Indication: GLIOMA
     Dosage: 1125 MG, SINGLE
     Route: 048
     Dates: start: 20080107
  3. ENZASTAURIN [Suspect]
     Dosage: 875 MG, QD
     Route: 048
  4. KEPPRA [Concomitant]
     Indication: DRUG USE FOR UNKNOWN INDICATION
  5. DILANTIN [Concomitant]
  6. PROTONIX [Concomitant]
  7. DECADRON [Concomitant]
  8. BACTRIM [Concomitant]
  9. WELLBUTRIN [Concomitant]
  10. CITALOPRAM HYDROBROMIDE [Concomitant]
  11. EPINEPHRINE [Suspect]

REACTIONS (15)
  - BRADYCARDIA [None]
  - CARDIAC ARREST [None]
  - CARDIOPULMONARY FAILURE [None]
  - CEPHALHAEMATOMA [None]
  - CONVULSION [None]
  - ELECTROMECHANICAL DISSOCIATION [None]
  - FALL [None]
  - HEAD INJURY [None]
  - HYPOTENSION [None]
  - PERICARDIAL EFFUSION [None]
  - PERICARDIAL HAEMORRHAGE [None]
  - PLATELET COUNT DECREASED [None]
  - PULMONARY EMBOLISM [None]
  - PURPURA [None]
  - VISCERAL CONGESTION [None]
